FAERS Safety Report 5583443-2 (Version None)
Quarter: 2007Q4

REPORT INFORMATION
  Report Type: 
  Country: None (occurrence: None)
  Receive Date: 20071231
  Receipt Date: 20071220
  Transmission Date: 20080405
  Serious: Yes (Death)
  Sender: FDA-Public Use
  Company Number: 147

PATIENT
  Sex: Male
  Weight: 49.8957 kg

DRUGS (7)
  1. FAZACLO ODT [Suspect]
     Indication: SCHIZOPHRENIA
     Dosage: 100 MG PO DAILY
     Route: 048
     Dates: start: 20070605, end: 20070901
  2. DILANTIN [Concomitant]
  3. KEPPRA [Concomitant]
  4. HALOPERIDOL DECANOATE [Concomitant]
  5. NORVASC [Concomitant]
  6. NICOTINE [Concomitant]
  7. ALBUTEROL [Concomitant]

REACTIONS (1)
  - DEATH [None]
